FAERS Safety Report 10267807 (Version 1)
Quarter: 2014Q2

REPORT INFORMATION
  Report Type: Spontaneous
  Country: JP (occurrence: JP)
  Receive Date: 20140630
  Receipt Date: 20140630
  Transmission Date: 20141212
  Serious: Yes (Life-Threatening, Hospitalization)
  Sender: FDA-Public Use
  Company Number: JP-MYLANLABS-2014S1014990

PATIENT
  Age: 78 Year
  Sex: Female

DRUGS (10)
  1. WARFARIN [Suspect]
     Indication: ATRIAL FIBRILLATION
     Dosage: 1.5 MG/D
     Route: 065
  2. AMLODIPINE [Concomitant]
     Dosage: 10 MG/D
     Route: 065
  3. OLMESARTAN MEDOXOMIL [Concomitant]
     Dosage: 40 MG/D
     Route: 065
  4. NIFEDIPINE [Concomitant]
     Dosage: 40 MG/D
     Route: 065
  5. ATORVASTATIN [Concomitant]
     Dosage: 10 MG/D
     Route: 065
  6. NICORANDIL [Concomitant]
     Dosage: 15 MG/D
     Route: 065
  7. ASPIRIN [Concomitant]
     Dosage: 100 MG/DL
     Route: 065
  8. CEFAZOLIN [Concomitant]
     Indication: ADENOIDITIS
     Dosage: 4 G/D
     Route: 065
  9. VALACICLOVIR [Concomitant]
     Indication: ADENOIDITIS
     Dosage: 1000 MG/D
     Route: 065
  10. HYDROCORTISONE [Concomitant]
     Indication: ADENOIDITIS
     Dosage: 100 MG/D
     Route: 065

REACTIONS (3)
  - Vitamin K deficiency [Recovered/Resolved]
  - Coagulopathy [Recovered/Resolved]
  - Renal failure [Recovered/Resolved]
